FAERS Safety Report 4380611-2 (Version None)
Quarter: 2004Q2

REPORT INFORMATION
  Report Type: 
  Country: None (occurrence: None)
  Receive Date: 20040618
  Receipt Date: 20040607
  Transmission Date: 20050107
  Serious: Yes (Hospitalization)
  Sender: FDA-Public Use
  Company Number: FR-GLAXOSMITHKLINE-B0335180A

PATIENT
  Age: 41 Year
  Sex: Male

DRUGS (4)
  1. RETROVIR [Suspect]
     Indication: HIV INFECTION
     Dosage: 600MG PER DAY
     Route: 048
     Dates: start: 19991001, end: 20021201
  2. EPIVIR [Suspect]
     Indication: HIV INFECTION
     Route: 048
     Dates: start: 19991001
  3. BACTRIM [Suspect]
     Route: 048
     Dates: start: 19990901, end: 20021201
  4. SUSTIVA [Concomitant]
     Indication: HIV INFECTION
     Route: 048
     Dates: start: 19991001

REACTIONS (5)
  - ANAEMIA [None]
  - FOLATE DEFICIENCY [None]
  - HAEMATEMESIS [None]
  - OESOPHAGITIS [None]
  - PANCYTOPENIA [None]
